FAERS Safety Report 9773918 (Version 2)
Quarter: 2013Q4

REPORT INFORMATION
  Report Type: Report from Study
  Country: US (occurrence: US)
  Receive Date: 20131220
  Receipt Date: 20131223
  Transmission Date: 20140711
  Serious: Yes (Other)
  Sender: FDA-Public Use
  Company Number: US-ROCHE-1322928

PATIENT
  Age: 76 Year
  Sex: Female
  Weight: 72.64 kg

DRUGS (5)
  1. LUCENTIS [Suspect]
     Indication: DIABETIC RETINAL OEDEMA
     Route: 050
     Dates: start: 20121120
  2. METFORMIN [Concomitant]
     Route: 048
     Dates: start: 20110221
  3. GLIPIZIDE [Concomitant]
     Route: 048
     Dates: start: 20110221
  4. ATENOLOL [Concomitant]
     Route: 048
     Dates: start: 20110221
  5. SIMVASTATIN [Concomitant]
     Route: 048
     Dates: start: 20110221

REACTIONS (2)
  - Wrist fracture [Recovering/Resolving]
  - Hip fracture [Recovering/Resolving]
